FAERS Safety Report 8369811-4 (Version None)
Quarter: 2012Q1

REPORT INFORMATION
  Report Type: 
  Country: None (occurrence: None)
  Receive Date: 20120323
  Receipt Date: 20111222
  Transmission Date: 20120608
  Serious: Yes (Hospitalization)
  Sender: FDA-Public Use
  Company Number: 163-21880-11080315

PATIENT
  Age: 84 Year
  Sex: Female
  Weight: 44.4525 kg

DRUGS (5)
  1. REVLIMID [Suspect]
     Indication: MYELODYSPLASTIC SYNDROME
     Dosage: SEE IMAGE PO
     Route: 048
     Dates: start: 20110301
  2. REVLIMID [Suspect]
     Indication: MYELODYSPLASTIC SYNDROME
     Dosage: SEE IMAGE PO
     Route: 048
     Dates: start: 20111101, end: 20111213
  3. REVLIMID [Suspect]
     Indication: MYELODYSPLASTIC SYNDROME
     Dosage: SEE IMAGE PO
     Route: 048
     Dates: start: 20101101
  4. REVLIMID [Suspect]
     Indication: MYELODYSPLASTIC SYNDROME
     Dosage: SEE IMAGE PO
     Route: 048
     Dates: start: 20110101
  5. REVLIMID [Suspect]
     Indication: MYELODYSPLASTIC SYNDROME
     Dosage: SEE IMAGE PO
     Route: 048
     Dates: start: 20110801

REACTIONS (6)
  - DISCOMFORT [None]
  - PLATELET COUNT DECREASED [None]
  - FATIGUE [None]
  - HAEMOGLOBIN DECREASED [None]
  - NEUTROPENIA [None]
  - ASPHYXIA [None]
